FAERS Safety Report 19108691 (Version 3)
Quarter: 2022Q1

REPORT INFORMATION
  Report Type: Report from Study
  Country: BR (occurrence: BR)
  Receive Date: 20210408
  Receipt Date: 20220131
  Transmission Date: 20220423
  Serious: Yes (Hospitalization, Other)
  Sender: FDA-Public Use
  Company Number: BR-TAKEDA-BR202034234

PATIENT
  Age: 26 Year
  Sex: Male
  Weight: 72 kg

DRUGS (7)
  1. HEMO-8R [Suspect]
     Active Substance: ANTIHEMOPHILIC FACTOR, HUMAN RECOMBINANT
     Indication: Factor VIII deficiency
     Dosage: 1500 INTERNATIONAL UNIT, 3/WEEK
     Route: 042
     Dates: start: 20020508
  2. HEMO-8R [Suspect]
     Active Substance: ANTIHEMOPHILIC FACTOR, HUMAN RECOMBINANT
     Dosage: 1500 INTERNATIONAL UNIT, 3/WEEK
     Route: 042
     Dates: start: 20190109
  3. HEMO-8R [Suspect]
     Active Substance: ANTIHEMOPHILIC FACTOR, HUMAN RECOMBINANT
     Dosage: 3000 INTERNATIONAL UNIT, 3/WEEK
     Route: 042
     Dates: start: 2021
  4. PHENOBARBITAL [Concomitant]
     Active Substance: PHENOBARBITAL
     Indication: Epilepsy
     Dosage: 1.5 DOSAGE FORM, BID
     Route: 065
  5. INSULIN ASPART [Concomitant]
     Active Substance: INSULIN ASPART
     Indication: Diabetes mellitus
     Dosage: UNK UNK, TID
     Route: 065
  6. LANTUS [Concomitant]
     Active Substance: INSULIN GLARGINE
     Indication: Diabetes mellitus
     Dosage: UNK UNK, TID
     Route: 065
  7. CHOLECALCIFEROL [Concomitant]
     Active Substance: CHOLECALCIFEROL
     Dosage: 1 DOSAGE FORM, 1/WEEK
     Route: 065
     Dates: start: 20211130

REACTIONS (19)
  - Fall [Recovered/Resolved with Sequelae]
  - Gait disturbance [Recovered/Resolved with Sequelae]
  - Joint stiffness [Recovered/Resolved with Sequelae]
  - Haemarthrosis [Recovering/Resolving]
  - Contusion [Recovering/Resolving]
  - Seizure [Recovering/Resolving]
  - Diabetes mellitus [Not Recovered/Not Resolved]
  - Scab [Not Recovered/Not Resolved]
  - Joint swelling [Not Recovered/Not Resolved]
  - Overweight [Recovering/Resolving]
  - Weight increased [Not Recovered/Not Resolved]
  - Thyroid disorder [Not Recovered/Not Resolved]
  - Arthralgia [Not Recovered/Not Resolved]
  - Pain in extremity [Recovered/Resolved]
  - Peripheral swelling [Recovered/Resolved]
  - Headache [Unknown]
  - Inappropriate schedule of product administration [Unknown]
  - Product distribution issue [Unknown]
  - Off label use [Unknown]

NARRATIVE: CASE EVENT DATE: 20210121
